FAERS Safety Report 7418430-2 (Version None)
Quarter: 2011Q2

REPORT INFORMATION
  Report Type: 
  Country: None (occurrence: None)
  Receive Date: 20110415
  Receipt Date: 20110406
  Transmission Date: 20111010
  Serious: Yes (Other)
  Sender: FDA-Public Use
  Company Number: PHHY2011DE30385

PATIENT
  Age: 32 Year
  Sex: Female

DRUGS (1)
  1. LEFLUNOMIDE [Suspect]
     Indication: RHEUMATOID ARTHRITIS

REACTIONS (9)
  - BONE ABSCESS [None]
  - BONE MARROW FAILURE [None]
  - ECCHYMOSIS [None]
  - APLASTIC ANAEMIA [None]
  - PYREXIA [None]
  - FATIGUE [None]
  - GRAFT VERSUS HOST DISEASE [None]
  - ASPERGILLOSIS [None]
  - PURPURA [None]
